FAERS Safety Report 7599118-4 (Version None)
Quarter: 2011Q3

REPORT INFORMATION
  Report Type: 
  Country: None (occurrence: None)
  Receive Date: 20110711
  Receipt Date: 20110629
  Transmission Date: 20111222
  Serious: Yes (Other)
  Sender: FDA-Public Use
  Company Number: US-BAYER-2011-030931

PATIENT
  Age: 73 Year
  Sex: Male

DRUGS (3)
  1. CIPROFLOXACIN HCL [Suspect]
     Indication: PROSTATITIS
     Dosage: 500 MG, QID
     Route: 048
     Dates: start: 20091215, end: 20100112
  2. LISINOPRIL [Concomitant]
  3. AMLODIPINE [Concomitant]

REACTIONS (2)
  - MUSCULAR WEAKNESS [None]
  - NERVE INJURY [None]
